FAERS Safety Report 6250801-2 (Version None)
Quarter: 2009Q2

REPORT INFORMATION
  Report Type: 
  Country: None (occurrence: None)
  Receive Date: 20090630
  Receipt Date: 20081119
  Transmission Date: 20091009
  Serious: No
  Sender: FDA-Public Use
  Company Number: US-ABBOTT-08P-163-0488776-00

PATIENT
  Sex: Female

DRUGS (3)
  1. ZEMPLAR [Suspect]
     Indication: HYPERPARATHYROIDISM
     Dates: start: 20080601
  2. ZEMPLAR [Suspect]
     Indication: RENAL FAILURE CHRONIC
  3. CINACALCET HYDROCHLORIDE [Concomitant]
     Dates: start: 20081020

REACTIONS (1)
  - DRUG INEFFECTIVE [None]
